FAERS Safety Report 8676078 (Version 3)
Quarter: 2012Q4

REPORT INFORMATION
  Report Type: 
  Country: US (occurrence: US)
  Receive Date: 20120720
  Receipt Date: 20120831
  Transmission Date: 20130627
  Serious: Yes (Hospitalization, Disabling)
  Sender: FDA-Public Use
  Company Number: US-JNJFOC-20120707037

PATIENT
  Age: 30 None
  Sex: Female

DRUGS (4)
  1. REMICADE [Suspect]
     Indication: COLITIS ULCERATIVE
     Dosage: 2nd infusion
     Route: 042
     Dates: start: 20120629
  2. REMICADE [Suspect]
     Indication: COLITIS ULCERATIVE
     Route: 042
     Dates: start: 20120617
  3. CIPRO [Suspect]
     Indication: PRODUCT USED FOR UNKNOWN INDICATION
     Route: 065
     Dates: start: 20120617, end: 20120703
  4. PREDNISONE [Concomitant]
     Route: 065
     Dates: start: 201204

REACTIONS (2)
  - Renal failure acute [Recovering/Resolving]
  - Focal segmental glomerulosclerosis [Recovering/Resolving]
